FAERS Safety Report 10400849 (Version 1)
Quarter: 2014Q3

REPORT INFORMATION
  Report Type: Spontaneous
  Country: US (occurrence: US)
  Receive Date: 20140821
  Receipt Date: 20140821
  Transmission Date: 20150326
  Serious: No
  Sender: FDA-Public Use
  Company Number: US-ASTRAZENECA-2014SE23105

PATIENT
  Sex: Male

DRUGS (2)
  1. SYMBICORT [Suspect]
     Active Substance: BUDESONIDE\FORMOTEROL FUMARATE DIHYDRATE
     Indication: CHRONIC OBSTRUCTIVE PULMONARY DISEASE
     Dosage: 160/4.5 MCG, UNKNOWN
     Route: 055
     Dates: start: 2014
  2. PROAIR HFA [Concomitant]
     Active Substance: ALBUTEROL SULFATE
     Route: 055

REACTIONS (1)
  - Breath sounds abnormal [Unknown]

NARRATIVE: CASE EVENT DATE: 2014
